FAERS Safety Report 9466952 (Version 2)
Quarter: 2013Q3

REPORT INFORMATION
  Report Type: Spontaneous
  Country: US (occurrence: US)
  Receive Date: 20130820
  Receipt Date: 20130903
  Transmission Date: 20140515
  Serious: No
  Sender: FDA-Public Use
  Company Number: US-009507513-1308USA005106

PATIENT
  Age: 23 Year
  Sex: Female
  Weight: 55.78 kg

DRUGS (2)
  1. NUVARING [Suspect]
     Indication: CONTRACEPTION
     Dosage: UNK
     Dates: start: 20130703
  2. NUVARING [Suspect]
     Dosage: ONE RING/THREE WEEKS
     Route: 067
     Dates: start: 20110803, end: 20120703

REACTIONS (3)
  - Device expulsion [Unknown]
  - Device physical property issue [Unknown]
  - Inappropriate schedule of drug administration [Unknown]
